FAERS Safety Report 6611215-6 (Version None)
Quarter: 2010Q1

REPORT INFORMATION
  Report Type: 
  Country: None (occurrence: None)
  Receive Date: 20100226
  Receipt Date: 20100226
  Transmission Date: 20100710
  Serious: Yes (Other)
  Sender: FDA-Public Use
  Company Number: None

PATIENT
  Age: 78 Year
  Sex: Female
  Weight: 48.9885 kg

DRUGS (1)
  1. BONIVA [Suspect]
     Indication: OSTEOPOROSIS
     Dosage: (1) TABLET 1 EVERY MONTH PO
     Route: 048
     Dates: start: 20100101

REACTIONS (7)
  - CHEST PAIN [None]
  - COUGH [None]
  - DIARRHOEA [None]
  - DYSPHAGIA [None]
  - ODYNOPHAGIA [None]
  - OESOPHAGEAL DISORDER [None]
  - PHARYNGEAL DISORDER [None]
